FAERS Safety Report 23539339 (Version 1)
Quarter: 2024Q1

REPORT INFORMATION
  Report Type: Spontaneous
  Country: CH (occurrence: CH)
  Receive Date: 20240219
  Receipt Date: 20240219
  Transmission Date: 20240410
  Serious: Yes (Other)
  Sender: FDA-Public Use
  Company Number: None

PATIENT
  Age: 39 Year
  Sex: Male
  Weight: 73 kg

DRUGS (17)
  1. METHYLPREDNISOLONE [Suspect]
     Active Substance: METHYLPREDNISOLONE
     Indication: Crohn^s disease
     Dosage: 60 MG WITHIN 30 MIN EACH MORNING
     Route: 042
     Dates: start: 20231024, end: 20231026
  2. PREDNISOLONE [Suspect]
     Active Substance: PREDNISOLONE
     Indication: Crohn^s disease
     Dosage: 40 MG, 1X/DAY
     Route: 048
     Dates: start: 20231027, end: 20231102
  3. PREDNISOLONE [Suspect]
     Active Substance: PREDNISOLONE
     Dosage: 30 MG, 1X/DAY
     Route: 048
     Dates: start: 20231103
  4. PREDNISOLONE [Suspect]
     Active Substance: PREDNISOLONE
     Dosage: 25 MG, 1X/DAY
     Route: 048
     Dates: start: 20231205, end: 20240110
  5. BUDESONIDE [Concomitant]
     Active Substance: BUDESONIDE
     Dosage: 9 MG, 1X/DAY (FOR 4 WEEKS )
     Route: 048
     Dates: start: 20231024
  6. BUDESONIDE [Concomitant]
     Active Substance: BUDESONIDE
     Dosage: 3 MG, 1X/DAY
     Route: 048
     Dates: start: 20240124, end: 202401
  7. CHOLECALCIFEROL [Concomitant]
     Active Substance: CHOLECALCIFEROL
     Dosage: 1.2 ML-0-0-0-0
     Route: 048
     Dates: start: 20231026
  8. MOVICOL [Concomitant]
     Active Substance: POLYETHYLENE GLYCOL 3350\POTASSIUM CHLORIDE\SODIUM BICARBONATE\SODIUM CHLORIDE
     Dosage: 25 ML, 1X/DAY
     Route: 048
     Dates: start: 20231025, end: 20231026
  9. MOVICOL [Concomitant]
     Active Substance: POLYETHYLENE GLYCOL 3350\POTASSIUM CHLORIDE\SODIUM BICARBONATE\SODIUM CHLORIDE
     Dosage: 25 ML, 2X/DAY
     Route: 048
     Dates: start: 20231027, end: 20231027
  10. MOVICOL [Concomitant]
     Active Substance: POLYETHYLENE GLYCOL 3350\POTASSIUM CHLORIDE\SODIUM BICARBONATE\SODIUM CHLORIDE
     Dosage: 25 ML, 1X/DAY
     Route: 048
     Dates: start: 20231028, end: 20231028
  11. MOVICOL [Concomitant]
     Active Substance: POLYETHYLENE GLYCOL 3350\POTASSIUM CHLORIDE\SODIUM BICARBONATE\SODIUM CHLORIDE
     Dosage: 25 ML, AS NEEDED (2X DAY)
     Route: 048
     Dates: start: 20231028
  12. SODIUM PICOSULFATE [Concomitant]
     Active Substance: SODIUM PICOSULFATE
     Dosage: 10 DROP, 1X/DAY
     Route: 048
     Dates: start: 20231026, end: 20231028
  13. SODIUM PICOSULFATE [Concomitant]
     Active Substance: SODIUM PICOSULFATE
     Dosage: UNK DROP, 1X/DAY (RESERVE 10-20 GTT AT NIGHT)
     Route: 048
     Dates: start: 20231028
  14. FRAGMIN [Concomitant]
     Active Substance: DALTEPARIN SODIUM
     Dosage: 0.2 ML, 1X/DAY
     Route: 058
     Dates: start: 20231025, end: 20231027
  15. RINGER LACTAT [CALCIUM CHLORIDE;MAGNESIUM CHLORIDE;POTASSIUM CHLORIDE; [Concomitant]
     Dosage: UNK
     Route: 042
     Dates: start: 20231024, end: 20231025
  16. CALCIUM CHLORIDE\MAGNESIUM CHLORIDE\MALIC ACID\POTASSIUM CHLORIDE\SODI [Concomitant]
     Active Substance: CALCIUM CHLORIDE\MAGNESIUM CHLORIDE\MALIC ACID\POTASSIUM CHLORIDE\SODIUM ACETATE\SODIUM CHLORIDE
     Dosage: UNK
     Route: 042
     Dates: start: 20231026, end: 20231027
  17. DEXPANTHENOL [Concomitant]
     Active Substance: DEXPANTHENOL
     Dosage: 50 MG/G, 2X/DAY
     Dates: start: 20231024, end: 20231025

REACTIONS (7)
  - Bradycardia [Recovered/Resolved]
  - Acute coronary syndrome [Unknown]
  - Hypokalaemia [Unknown]
  - Leiomyoma [Unknown]
  - Sinus arrhythmia [Unknown]
  - Supraventricular extrasystoles [Unknown]
  - Off label use [Unknown]

NARRATIVE: CASE EVENT DATE: 20231024
